FAERS Safety Report 14619813 (Version 1)
Quarter: 2018Q1

REPORT INFORMATION
  Report Type: Spontaneous
  Country: US (occurrence: US)
  Receive Date: 20180309
  Receipt Date: 20180309
  Transmission Date: 20180509
  Serious: Yes (Life-Threatening, Hospitalization, Disabling, Other)
  Sender: FDA-Public Use
  Company Number: None

PATIENT
  Age: 80 Year
  Sex: Female
  Weight: 94.5 kg

DRUGS (1)
  1. XARELTO [Suspect]
     Active Substance: RIVAROXABAN
     Indication: KNEE ARTHROPLASTY
     Dosage: ?          QUANTITY:1 TABLET(S);?
     Route: 048
     Dates: start: 20110801, end: 20180205

REACTIONS (6)
  - Skin haemorrhage [None]
  - Rectal haemorrhage [None]
  - Transient ischaemic attack [None]
  - Constipation [None]
  - Contusion [None]
  - Fall [None]

NARRATIVE: CASE EVENT DATE: 20180205
